FAERS Safety Report 9541553 (Version 1)
Quarter: 2013Q2

REPORT INFORMATION
  Report Type: Spontaneous
  Country: US (occurrence: None)
  Receive Date: 20130524
  Receipt Date: 20130524
  Transmission Date: 20140414
  Serious: Yes (Other)
  Sender: FDA-Public Use
  Company Number: PHEH2012US025735

PATIENT
  Age: 32 Year
  Sex: Female

DRUGS (1)
  1. GILENYA (FINGOLIMOD) CAPSULE, 0.5 MG [Suspect]
     Indication: MULTIPLE SCLEROSIS
     Dosage: 0.5 MG, QD, ORAL
     Route: 048
     Dates: start: 20120109

REACTIONS (7)
  - Overdose [None]
  - Nasopharyngitis [None]
  - Otorrhoea [None]
  - Nasal dryness [None]
  - Oropharyngeal pain [None]
  - Dry throat [None]
  - Paranasal sinus hypersecretion [None]
